FAERS Safety Report 9223059 (Version 5)
Quarter: 2016Q2

REPORT INFORMATION
  Report Type: Spontaneous
  Country: US (occurrence: US)
  Receive Date: 20130410
  Receipt Date: 20160406
  Transmission Date: 20160815
  Serious: Yes (Other)
  Sender: FDA-Public Use
  Company Number: US-009507513-1304USA003897

PATIENT
  Sex: Male
  Weight: 80.73 kg

DRUGS (1)
  1. PROPECIA [Suspect]
     Active Substance: FINASTERIDE
     Indication: ALOPECIA AREATA
     Dosage: 1 MG, QD
     Route: 048
     Dates: start: 19990115, end: 20000419

REACTIONS (11)
  - Essential hypertension [Unknown]
  - Peptic ulcer [Unknown]
  - Limb injury [Unknown]
  - Limb operation [Unknown]
  - Therapeutic response decreased [Unknown]
  - Type V hyperlipidaemia [Unknown]
  - Sexual dysfunction [Not Recovered/Not Resolved]
  - Organic erectile dysfunction [Unknown]
  - Alopecia [Not Recovered/Not Resolved]
  - Cognitive disorder [Not Recovered/Not Resolved]
  - Gastrooesophageal reflux disease [Unknown]

NARRATIVE: CASE EVENT DATE: 199906
